FAERS Safety Report 15470592 (Version 1)
Quarter: 2018Q4

REPORT INFORMATION
  Report Type: Spontaneous
  Country: JP (occurrence: JP)
  Receive Date: 20181005
  Receipt Date: 20181005
  Transmission Date: 20190205
  Serious: Yes (Life-Threatening, Hospitalization)
  Sender: FDA-Public Use
  Company Number: JP-SA-2018SA261585

PATIENT
  Age: 21 Year
  Sex: Female

DRUGS (2)
  1. TRAVELMIN CHUROP [Suspect]
     Active Substance: CHLORPHENIRAMINE MALEATE\SCOPOLAMINE HYDROBROMIDE
     Indication: SUICIDE ATTEMPT
     Route: 048
  2. DREWELL [Suspect]
     Active Substance: DIPHENHYDRAMINE HYDROCHLORIDE
     Indication: SUICIDE ATTEMPT
     Route: 048

REACTIONS (6)
  - Tachycardia [Recovered/Resolved]
  - Toxicity to various agents [Recovered/Resolved]
  - Altered state of consciousness [Recovered/Resolved]
  - Tremor [Recovered/Resolved]
  - Opsoclonus myoclonus [Recovered/Resolved]
  - Intentional overdose [Unknown]
